FAERS Safety Report 8403382-9 (Version None)
Quarter: 2012Q2

REPORT INFORMATION
  Report Type: 
  Country: None (occurrence: None)
  Receive Date: 20120323
  Receipt Date: 20111003
  Transmission Date: 20120825
  Serious: Yes (Disabling)
  Sender: FDA-Public Use
  Company Number: 163-21880-11043791

PATIENT
  Age: 70 Year
  Sex: Female

DRUGS (12)
  1. NEURONTIN [Concomitant]
  2. METHOCARBAMOL [Concomitant]
  3. CAPTOPRIL [Concomitant]
  4. OXYCODONE(OXYCODONE)(5 MILLIGRAM, UNKNOWN) [Concomitant]
  5. LYRICA(PREGABALIN)(UNKNOWN) [Concomitant]
  6. ZOMETA [Concomitant]
  7. DECADRON [Concomitant]
  8. REVLIMID [Suspect]
     Indication: MULTIPLE MYELOMA
     Dosage: 15 MG,1 IN 1 D, PO, 10 MG, DAILY X21 DAYS
     Route: 048
     Dates: start: 20110208
  9. REVLIMID [Suspect]
     Indication: MULTIPLE MYELOMA
     Dosage: 15 MG,1 IN 1 D, PO, 10 MG, DAILY X21 DAYS
     Route: 048
     Dates: start: 20101101
  10. REVLIMID [Suspect]
     Indication: MULTIPLE MYELOMA
     Dosage: 15 MG,1 IN 1 D, PO, 10 MG, DAILY X21 DAYS
     Route: 048
     Dates: start: 20110428
  11. IBUPROFEN [Concomitant]
  12. COUMADIN [Concomitant]

REACTIONS (1)
  - TOXIC NEUROPATHY [None]
